APPROVED DRUG PRODUCT: GENTAMICIN SULFATE
Active Ingredient: GENTAMICIN SULFATE
Strength: EQ 10MG BASE/ML
Dosage Form/Route: INJECTABLE;INJECTION
Application: A062612 | Product #004
Applicant: HOSPIRA INC
Approved: Feb 20, 1986 | RLD: No | RS: No | Type: DISCN